FAERS Safety Report 19537575 (Version 2)
Quarter: 2021Q3

REPORT INFORMATION
  Report Type: Report from Study
  Country: IT (occurrence: IT)
  Receive Date: 20210714
  Receipt Date: 20210721
  Transmission Date: 20211014
  Serious: Yes (Other)
  Sender: FDA-Public Use
  Company Number: IT-ROCHE-2866628

PATIENT
  Age: 52 Year
  Sex: Female
  Weight: 87 kg

DRUGS (7)
  1. PERTUZUMAB. [Suspect]
     Active Substance: PERTUZUMAB
     Route: 042
  2. PACLITAXEL. [Suspect]
     Active Substance: PACLITAXEL
     Indication: BREAST CANCER
     Dosage: LAST DOSE BEFORE SAE 23/06/2021 175.5 MG
     Route: 042
     Dates: start: 20210401, end: 20210623
  3. ATEZOLIZUMAB. [Suspect]
     Active Substance: ATEZOLIZUMAB
     Indication: BREAST CANCER
     Dosage: LAST DOSE BEFORE SAE 09/06/2021 1200 MG
     Route: 041
     Dates: start: 20210401, end: 20210609
  4. TRASTUZUMAB. [Suspect]
     Active Substance: TRASTUZUMAB
     Dosage: DAY 1 AT THE DOSE OF 8 MG/KG LOADING DOSE I.V., THEN 6 MG/KG I.V.
     Route: 041
  5. TRASTUZUMAB. [Suspect]
     Active Substance: TRASTUZUMAB
     Indication: BREAST CANCER
     Dosage: DAY 1 AT THE DOSE OF 8 MG/KG LOADING DOSE I.V., THEN 6 MG/KG I.V.?LAST DOSE BEFORE SAE 09/06/2021 5
     Route: 041
     Dates: start: 20210401, end: 20210609
  6. CARBOPLATIN. [Suspect]
     Active Substance: CARBOPLATIN
     Indication: BREAST CANCER
     Dosage: AT AUC 2?LAST DOSE BEFORE SAE 23/06/2021 268 MG
     Route: 042
     Dates: start: 20210401, end: 20210623
  7. PERTUZUMAB. [Suspect]
     Active Substance: PERTUZUMAB
     Indication: BREAST CANCER
     Dosage: DAY 1 AT THE DOSE OF 840 MG LOADING DOSE I.V., THEN 420 MG IV?LAST DOSE BEFORE SAE 09/06/2021 420 MG
     Route: 042
     Dates: start: 20210401, end: 20210609

REACTIONS (1)
  - Rash [Recovering/Resolving]

NARRATIVE: CASE EVENT DATE: 20210623
